FAERS Safety Report 5978403-3 (Version None)
Quarter: 2008Q4

REPORT INFORMATION
  Report Type: 
  Country: None (occurrence: None)
  Receive Date: 20081204
  Receipt Date: 20081127
  Transmission Date: 20090506
  Serious: Yes (Death, Hospitalization)
  Sender: FDA-Public Use
  Company Number: JP-BAYER-JP-2007-017005

PATIENT
  Age: 84 Year
  Sex: Female
  Weight: 63 kg

DRUGS (12)
  1. FLUDARA [Suspect]
     Indication: CHRONIC LYMPHOCYTIC LEUKAEMIA
     Dosage: TOTAL DAILY DOSE: 30 MG  UNIT DOSE: 50 MG
     Route: 042
     Dates: start: 20070220, end: 20070224
  2. FLUDARA [Suspect]
     Dosage: TOTAL DAILY DOSE: 25.05 MG  UNIT DOSE: 50 MG
     Route: 042
     Dates: start: 20070404, end: 20070407
  3. PREDNISOLONE [Concomitant]
     Indication: ANAEMIA HAEMOLYTIC AUTOIMMUNE
     Route: 048
     Dates: start: 20070219, end: 20070406
  4. ADALAT CC [Concomitant]
     Indication: HYPERTENSION
     Dosage: UNIT DOSE: 20 MG
     Route: 048
     Dates: start: 20070215, end: 20070419
  5. TENORMIN [Concomitant]
     Indication: HYPERTENSION
     Dosage: UNIT DOSE: 50 MG
     Route: 048
     Dates: start: 20070215, end: 20070419
  6. NU-LOTAN [Concomitant]
     Indication: HYPERTENSION
     Dosage: UNIT DOSE: 25 MG
     Route: 048
     Dates: start: 20070215, end: 20070419
  7. SUNRYTHM [Concomitant]
     Indication: ATRIAL FIBRILLATION
     Dosage: UNIT DOSE: 150 MG
     Route: 048
     Dates: start: 20070215, end: 20070419
  8. CEROCRAL [Concomitant]
     Indication: CEREBRAL INFARCTION
     Dosage: UNIT DOSE: 60 MG
     Route: 048
     Dates: start: 20070215, end: 20070419
  9. MEVALOTIN [Concomitant]
     Indication: HYPERLIPIDAEMIA
     Dosage: UNIT DOSE: 10 MG
     Route: 048
     Dates: start: 20070215, end: 20070419
  10. ZYLORIC [Concomitant]
     Indication: HYPERURICAEMIA
     Dosage: UNIT DOSE: 300 MG
     Route: 048
     Dates: start: 20070216, end: 20070306
  11. DIFLUCAN [Concomitant]
     Indication: INFECTION PROPHYLAXIS
     Dosage: UNIT DOSE: 200 MG
     Route: 048
     Dates: start: 20070315, end: 20070320
  12. COTRIM [Concomitant]
     Indication: INFECTION PROPHYLAXIS
     Route: 048
     Dates: start: 20070315, end: 20070320

REACTIONS (3)
  - CARDIAC FAILURE [None]
  - CYTOMEGALOVIRUS VIRAEMIA [None]
  - PNEUMONIA [None]
